FAERS Safety Report 13029015 (Version 1)
Quarter: 2016Q4

REPORT INFORMATION
  Report Type: Spontaneous
  Country: US (occurrence: US)
  Receive Date: 20161214
  Receipt Date: 20161214
  Transmission Date: 20170207
  Serious: No
  Sender: FDA-Public Use
  Company Number: US-BAUSCH-BL-2016-011819

PATIENT
  Sex: Male

DRUGS (2)
  1. CARAC [Suspect]
     Active Substance: FLUOROURACIL
     Indication: ACTINIC KERATOSIS
     Route: 061
     Dates: start: 201602, end: 201603
  2. CORTISONE 10 [Concomitant]
     Indication: PAIN
     Dosage: EVERY 4-6 HOURS
     Route: 061

REACTIONS (2)
  - Erythema [Recovering/Resolving]
  - Pain [Recovered/Resolved]

NARRATIVE: CASE EVENT DATE: 2016
